FAERS Safety Report 14818311 (Version 2)
Quarter: 2018Q3

REPORT INFORMATION
  Report Type: Spontaneous
  Country: US (occurrence: US)
  Receive Date: 20180427
  Receipt Date: 20180711
  Transmission Date: 20181010
  Serious: Yes (Death, Hospitalization, Other)
  Sender: FDA-Public Use
  Company Number: US-009507513-1804USA011511

PATIENT
  Age: 71 Year
  Sex: Female

DRUGS (4)
  1. EMEND (FOSAPREPITANT DIMEGLUMINE) [Suspect]
     Active Substance: FOSAPREPITANT DIMEGLUMINE
     Indication: NAUSEA
     Dosage: 150 MG, UNK
     Route: 042
     Dates: start: 20180413, end: 20180413
  2. EMEND (FOSAPREPITANT DIMEGLUMINE) [Suspect]
     Active Substance: FOSAPREPITANT DIMEGLUMINE
     Dosage: 150 MG, UNK
     Route: 042
     Dates: start: 20180423, end: 20180423
  3. ATENOLOL. [Concomitant]
     Active Substance: ATENOLOL
     Indication: HYPERTENSION
     Dosage: 25 MG, IN THE MORNING
  4. EMEND (FOSAPREPITANT DIMEGLUMINE) [Suspect]
     Active Substance: FOSAPREPITANT DIMEGLUMINE
     Indication: PROPHYLAXIS OF NAUSEA AND VOMITING
     Dosage: 150 MG, UNK
     Route: 042
     Dates: start: 20180410, end: 20180410

REACTIONS (13)
  - Drug hypersensitivity [Recovered/Resolved]
  - Pulmonary embolism [Fatal]
  - Ovarian cancer stage IV [Fatal]
  - Oxygen saturation decreased [Recovering/Resolving]
  - Cardiac arrest [Unknown]
  - Cardiac arrest [Unknown]
  - Cardiac arrest [Unknown]
  - Visual impairment [Recovering/Resolving]
  - Blood pressure decreased [Recovering/Resolving]
  - Product use in unapproved indication [Unknown]
  - Dyspnoea [Unknown]
  - Nausea [Unknown]
  - Cardiac arrest [Fatal]

NARRATIVE: CASE EVENT DATE: 2018
